FAERS Safety Report 5287702-2 (Version None)
Quarter: 2007Q1

REPORT INFORMATION
  Report Type: 
  Country: None (occurrence: None)
  Receive Date: 20070116
  Receipt Date: 20060917
  Transmission Date: 20070707
  Serious: No
  Sender: FDA-Public Use
  Company Number: 2006SP003311

PATIENT
  Sex: Male

DRUGS (2)
  1. LUNESTA [Suspect]
     Dosage: ORAL
     Route: 048
  2. ZOLOFT [Concomitant]

REACTIONS (4)
  - CRYING [None]
  - DRUG INEFFECTIVE [None]
  - EMOTIONAL DISTRESS [None]
  - INSOMNIA [None]
